FAERS Safety Report 25993002 (Version 1)
Quarter: 2025Q4

REPORT INFORMATION
  Report Type: Spontaneous
  Country: JP (occurrence: JP)
  Receive Date: 20251103
  Receipt Date: 20251103
  Transmission Date: 20260117
  Serious: Yes (Other)
  Sender: ASTELLAS
  Company Number: JP-ASTELLAS-2025-AER-059644

PATIENT
  Age: 62 Year
  Sex: Female

DRUGS (3)
  1. PROGRAF [Suspect]
     Active Substance: TACROLIMUS
     Indication: Renal transplant
     Dosage: 0.8 MG WAS ADMINISTERED IN 24 HOURS
     Route: 065
  2. TACROLIMUS [Suspect]
     Active Substance: TACROLIMUS
     Indication: Renal transplant
     Route: 048
  3. CELLCEPT [Concomitant]
     Active Substance: MYCOPHENOLATE MOFETIL
     Indication: Product used for unknown indication
     Dosage: THROUGH THE TUBE
     Route: 065

REACTIONS (8)
  - Renal impairment [Unknown]
  - Depressed level of consciousness [Unknown]
  - Immunosuppressant drug level increased [Unknown]
  - Coagulopathy [Unknown]
  - Dysphagia [Unknown]
  - Hepatic function abnormal [Unknown]
  - Blood albumin decreased [Unknown]
  - Somnolence [Unknown]
